FAERS Safety Report 9374338 (Version 1)
Quarter: 2013Q2

REPORT INFORMATION
  Report Type: Spontaneous
  Country: US (occurrence: US)
  Receive Date: 20130628
  Receipt Date: 20130628
  Transmission Date: 20140414
  Serious: No
  Sender: FDA-Public Use
  Company Number: US-PFIZER INC-2013191118

PATIENT
  Sex: Male
  Weight: 78.01 kg

DRUGS (1)
  1. FLECTOR [Suspect]
     Indication: SCIATICA
     Dosage: UNK, 2X/DAY

REACTIONS (2)
  - Fall [Unknown]
  - Contusion [Unknown]
